FAERS Safety Report 18574238 (Version 1)
Quarter: 2020Q4

REPORT INFORMATION
  Report Type: Spontaneous
  Country: US (occurrence: US)
  Receive Date: 20201202
  Receipt Date: 20201202
  Transmission Date: 20210114
  Serious: Yes (Other)
  Sender: FDA-Public Use
  Company Number: None

PATIENT
  Age: 86 Year
  Sex: Male
  Weight: 98 kg

DRUGS (1)
  1. TOLTERODINE (TOLTERODINE TARTRATE 1MG TAB) [Suspect]
     Active Substance: TOLTERODINE TARTRATE
     Route: 048
     Dates: start: 20200320, end: 20200925

REACTIONS (1)
  - Hallucination [None]

NARRATIVE: CASE EVENT DATE: 20200925
